FAERS Safety Report 6658693-4 (Version None)
Quarter: 2010Q1

REPORT INFORMATION
  Report Type: 
  Country: None (occurrence: None)
  Receive Date: 20100330
  Receipt Date: 20100322
  Transmission Date: 20100710
  Serious: Yes (Disabling, Other)
  Sender: FDA-Public Use
  Company Number: FR-JNJFOC-20090705678

PATIENT
  Age: 62 Year
  Sex: Female
  Weight: 78 kg

DRUGS (9)
  1. REMICADE [Suspect]
     Indication: SJOGREN'S SYNDROME
     Dosage: DAY 0, 1ST INFUSION
     Route: 042
  2. REMICADE [Suspect]
     Dosage: DAY 14, 2ND INFUSION
     Route: 042
  3. CORTANCYL [Concomitant]
     Route: 048
  4. PRAVASTATIN [Concomitant]
     Route: 048
  5. EURELIX [Concomitant]
     Route: 048
  6. VERAPAMIL [Concomitant]
     Route: 048
  7. ENTOCORT EC [Concomitant]
     Route: 048
  8. NEXIUM [Concomitant]
     Route: 048
  9. CLARITIN [Concomitant]
     Route: 048

REACTIONS (1)
  - NEUROPATHY PERIPHERAL [None]
